FAERS Safety Report 8687210 (Version 2)
Quarter: 2012Q4

REPORT INFORMATION
  Report Type: 
  Country: JP (occurrence: JP)
  Receive Date: 20120727
  Receipt Date: 20121105
  Transmission Date: 20130627
  Serious: Yes (Other)
  Sender: FDA-Public Use
  Company Number: PHHY2012JP044782

PATIENT

DRUGS (2)
  1. NEORAL [Suspect]
     Indication: PUSTULAR PSORIASIS
     Dosage: 100 mg, QD, before breakfast
     Route: 048
     Dates: end: 20120518
  2. NEORAL [Suspect]
     Dosage: 50 mg, QD
     Route: 048

REACTIONS (2)
  - Gastrointestinal perforation [Unknown]
  - Oral administration complication [Recovered/Resolved]
